FAERS Safety Report 8246211-9 (Version None)
Quarter: 2012Q1

REPORT INFORMATION
  Report Type: 
  Country: None (occurrence: None)
  Receive Date: 20120330
  Receipt Date: 20120326
  Transmission Date: 20120608
  Serious: Yes (Other)
  Sender: FDA-Public Use
  Company Number: FR-AMGEN-FRASP2012019084

PATIENT
  Sex: Female

DRUGS (1)
  1. ARANESP [Suspect]
     Indication: ANAEMIA
     Dosage: 40 MUG, UNK
     Dates: start: 20120326

REACTIONS (5)
  - DYSPNOEA [None]
  - DIZZINESS [None]
  - HYPERSENSITIVITY [None]
  - HYPERHIDROSIS [None]
  - HOT FLUSH [None]
